FAERS Safety Report 22116862 (Version 1)
Quarter: 2023Q1

REPORT INFORMATION
  Report Type: Spontaneous
  Country: FR (occurrence: FR)
  Receive Date: 20230320
  Receipt Date: 20230320
  Transmission Date: 20230417
  Serious: Yes (Life-Threatening)
  Sender: FDA-Public Use
  Company Number: None

PATIENT
  Age: 21 Year
  Sex: Female
  Weight: 56.8 kg

DRUGS (18)
  1. ROCURONIUM [Suspect]
     Active Substance: ROCURONIUM BROMIDE
     Indication: Induction of anaesthesia
     Dosage: 50 MG, SINGLE
     Route: 042
     Dates: start: 20230117, end: 20230117
  2. IOBITRIDOL [Suspect]
     Active Substance: IOBITRIDOL
     Indication: Computerised tomogram
     Dosage: 150 ML, 1X/DAY
     Route: 042
     Dates: start: 20230201, end: 20230201
  3. MORPHINE [Suspect]
     Active Substance: MORPHINE
     Indication: Analgesic therapy
     Dosage: 5 MG, SINGLE
     Route: 042
     Dates: start: 20230117, end: 20230117
  4. DEXAMETHASONE [Suspect]
     Active Substance: DEXAMETHASONE
     Indication: Prophylaxis
     Dosage: 8 MG, SINGLE
     Route: 042
     Dates: start: 20230117, end: 20230117
  5. DROPERIDOL [Suspect]
     Active Substance: DROPERIDOL
     Indication: Prophylaxis
     Dosage: 1.25 MG, SINGLE
     Route: 042
     Dates: start: 20230117, end: 20230117
  6. BRIDION [Suspect]
     Active Substance: SUGAMMADEX
     Indication: Neuromuscular blockade reversal
     Dosage: 200 MG, SINGLE
     Route: 042
     Dates: start: 20230117, end: 20230117
  7. PIPERACILLIN SODIUM\TAZOBACTAM SODIUM [Suspect]
     Active Substance: PIPERACILLIN SODIUM\TAZOBACTAM SODIUM
     Indication: Colonic abscess
     Dosage: 12 G, 1X/DAY
     Route: 042
     Dates: start: 20230202, end: 20230214
  8. KETOPROFEN [Suspect]
     Active Substance: KETOPROFEN
     Indication: Prophylaxis
     Dosage: 100 MG, SINGLE
     Route: 042
     Dates: start: 20230117, end: 20230117
  9. ONDANSETRON [Suspect]
     Active Substance: ONDANSETRON
     Indication: Prophylaxis of nausea and vomiting
     Dosage: 1 DF, 1X/DAY
     Route: 048
     Dates: start: 20230117, end: 20230119
  10. PROPOFOL [Suspect]
     Active Substance: PROPOFOL
     Indication: Induction of anaesthesia
     Dosage: 200 MG, SINGLE
     Route: 042
     Dates: start: 20230117, end: 20230117
  11. CEFOXITIN [Suspect]
     Active Substance: CEFOXITIN SODIUM
     Indication: Antibiotic prophylaxis
     Dosage: 2 G, 1X/DAY
     Route: 042
     Dates: start: 20230117, end: 20230117
  12. SUFENTANIL [Suspect]
     Active Substance: SUFENTANIL
     Indication: Analgesic therapy
     Dosage: 45 UG, SINGLE
     Route: 042
     Dates: start: 20230117, end: 20230117
  13. EPHEDRINE [Suspect]
     Active Substance: EPHEDRINE
     Indication: Hypotension
     Dosage: 6 MG, SINGLE
     Route: 042
     Dates: start: 20230117, end: 20230117
  14. KETAMINE [Suspect]
     Active Substance: KETAMINE
     Indication: Induction of anaesthesia
     Dosage: 20 MG, SINGLE
     Route: 042
     Dates: start: 20230117, end: 20230117
  15. TRIMEBUTINE MALEATE [Suspect]
     Active Substance: TRIMEBUTINE MALEATE
     Indication: Abdominal pain
     Dosage: 300 MG, 1X/DAY
     Route: 048
     Dates: start: 20230118, end: 20230213
  16. METRONIDAZOLE [Suspect]
     Active Substance: METRONIDAZOLE
     Indication: Antibiotic prophylaxis
     Dosage: 1000 MG, 1X/DAY
     Route: 042
     Dates: start: 20230117, end: 20230117
  17. LOVENOX [Concomitant]
     Active Substance: ENOXAPARIN SODIUM
  18. PHLOROGLUCINOL [Concomitant]
     Active Substance: PHLOROGLUCINOL

REACTIONS (1)
  - Drug reaction with eosinophilia and systemic symptoms [Recovered/Resolved]

NARRATIVE: CASE EVENT DATE: 20230211
